FAERS Safety Report 18734819 (Version 2)
Quarter: 2021Q1

REPORT INFORMATION
  Report Type: Spontaneous
  Country: US (occurrence: US)
  Receive Date: 20210113
  Receipt Date: 20210125
  Transmission Date: 20210419
  Serious: Yes (Other)
  Sender: FDA-Public Use
  Company Number: US-AMGEN-USASP2021000301

PATIENT
  Age: 16 Year
  Sex: Male

DRUGS (2)
  1. VITAMIN B6 [Concomitant]
     Active Substance: PYRIDOXINE HYDROCHLORIDE
     Dosage: 100 MILLIGRAM, QD
  2. DARBEPOETIN ALFA [Suspect]
     Active Substance: DARBEPOETIN ALFA
     Indication: ANAEMIA VITAMIN B6 DEFICIENCY
     Dosage: 0.9 MICROGRAM/KILOGRAM, QWK
     Route: 042

REACTIONS (5)
  - Anaemia vitamin B6 deficiency [Unknown]
  - Ceruloplasmin increased [Unknown]
  - Blood parathyroid hormone increased [Unknown]
  - Erythropoiesis abnormal [Unknown]
  - Drug resistance [Unknown]
